FAERS Safety Report 7900942-6 (Version None)
Quarter: 2011Q4

REPORT INFORMATION
  Report Type: 
  Country: None (occurrence: None)
  Receive Date: 20111104
  Receipt Date: 20111024
  Transmission Date: 20120403
  Serious: Yes (Other)
  Sender: FDA-Public Use
  Company Number: NGX_00663_2011

PATIENT
  Sex: Female
  Weight: 47 kg

DRUGS (2)
  1. LONG-TERM MEDICATION [Concomitant]
  2. QUTENZA [Suspect]
     Indication: PAIN
     Dosage: (DF [1/4 TO PATCH] TOPICAL)
     Route: 061
     Dates: start: 20111013, end: 20111013

REACTIONS (8)
  - CARDIAC DISORDER [None]
  - CARDIOVASCULAR DISORDER [None]
  - BLOOD PRESSURE DIASTOLIC INCREASED [None]
  - APPLICATION SITE PAIN [None]
  - TACHYCARDIA [None]
  - HYPOTONIA [None]
  - DIZZINESS [None]
  - GASTROINTESTINAL PAIN [None]
